FAERS Safety Report 9443364 (Version 1)
Quarter: 2013Q3

REPORT INFORMATION
  Report Type: Report from Study
  Country: US (occurrence: US)
  Receive Date: 20130806
  Receipt Date: 20130806
  Transmission Date: 20140515
  Serious: Yes (Hospitalization)
  Sender: FDA-Public Use
  Company Number: US-VERTEX PHARMACEUTICALS INC-AE-2011-000622

PATIENT
  Age: 13 Year
  Sex: Female
  Weight: 48 kg

DRUGS (14)
  1. VX-770 [Suspect]
     Indication: CYSTIC FIBROSIS
     Dosage: 150 MG, UNK
     Route: 048
     Dates: start: 20100212
  2. VX-770 [Suspect]
     Dosage: 150 UNK, UNK
     Route: 048
     Dates: start: 20100608, end: 20110527
  3. ALBUTEROL [Concomitant]
     Indication: CYSTIC FIBROSIS LUNG
     Dates: start: 1999
  4. PULMOZYME [Concomitant]
     Indication: CYSTIC FIBROSIS LUNG
     Dates: start: 19990526
  5. LANSOPRAZOLE [Concomitant]
     Indication: GASTROOESOPHAGEAL REFLUX DISEASE
     Dates: start: 20050921
  6. MONTELUKAST [Concomitant]
     Indication: RHINITIS ALLERGIC
     Dates: start: 20080327
  7. FLUTICASONE [Concomitant]
     Indication: NASAL POLYPS
     Dates: start: 20080103
  8. CETRIZINE [Concomitant]
     Indication: RHINITIS ALLERGIC
     Dates: start: 20000302
  9. SOURCE CF VITAMIN [Concomitant]
     Indication: PANCREATIC INSUFFICIENCY
     Dates: start: 20051129
  10. CREON 12000 [Concomitant]
     Indication: PANCREATIC INSUFFICIENCY
     Dates: start: 19990504
  11. ACIDOPHILUS [Concomitant]
     Indication: MEDICAL DIET
     Dates: start: 20040219
  12. VITAMIN C [Concomitant]
     Indication: MEDICAL DIET
     Dates: start: 20070625
  13. SALINE SPRAY [Concomitant]
     Indication: RHINITIS ALLERGIC
     Dates: start: 20070410
  14. CEFDINIR [Concomitant]
     Indication: INFECTIVE PULMONARY EXACERBATION OF CYSTIC FIBROSIS
     Dates: start: 20110210

REACTIONS (1)
  - Infective pulmonary exacerbation of cystic fibrosis [Recovered/Resolved]
